FAERS Safety Report 5955549-7 (Version None)
Quarter: 2008Q4

REPORT INFORMATION
  Report Type: 
  Country: None (occurrence: None)
  Receive Date: 20081113
  Receipt Date: 20081104
  Transmission Date: 20090506
  Serious: Yes (Life-Threatening)
  Sender: FDA-Public Use
  Company Number: IDA-00143

PATIENT
  Age: 44 Year
  Sex: Female

DRUGS (2)
  1. INDERAL [Suspect]
     Indication: ATRIAL FIBRILLATION
     Dosage: 2 MG BID
     Route: 042
     Dates: start: 20080317, end: 20080317
  2. ACETATED RINGER'S SOLUTION WITH GLUCOSE [Concomitant]

REACTIONS (7)
  - BACK PAIN [None]
  - CARDIO-RESPIRATORY ARREST [None]
  - CHEST DISCOMFORT [None]
  - DIALYSIS [None]
  - HYPOAESTHESIA [None]
  - HYPOXIC ENCEPHALOPATHY [None]
  - MULTI-ORGAN FAILURE [None]
